FAERS Safety Report 12900009 (Version 1)
Quarter: 2016Q4

REPORT INFORMATION
  Report Type: Spontaneous
  Country: AU (occurrence: AU)
  Receive Date: 20161101
  Receipt Date: 20161101
  Transmission Date: 20170207
  Serious: Yes (Other)
  Sender: FDA-Public Use
  Company Number: AU-HERITAGE PHARMACEUTICALS-2016HTG00262

PATIENT
  Sex: Female

DRUGS (1)
  1. ACETAZOLAMIDE. [Suspect]
     Active Substance: ACETAZOLAMIDE
     Indication: INTRAOCULAR PRESSURE INCREASED
     Dosage: 500 MG, ^6TH HOURLY^
     Route: 065

REACTIONS (2)
  - Delirium [Recovered/Resolved]
  - Toxicity to various agents [Recovered/Resolved]
